FAERS Safety Report 17798106 (Version 1)
Quarter: 2020Q2

REPORT INFORMATION
  Report Type: Spontaneous
  Country: US (occurrence: US)
  Receive Date: 20200517
  Receipt Date: 20200517
  Transmission Date: 20200714
  Serious: No
  Sender: FDA-Public Use
  Company Number: None

PATIENT
  Age: 36 Year
  Sex: Female
  Weight: 66.15 kg

DRUGS (8)
  1. VITAMIN D [Concomitant]
     Active Substance: VITAMIN D NOS
  2. LIOTHYRONINE [Concomitant]
     Active Substance: LIOTHYRONINE
  3. FISH OIL [Concomitant]
     Active Substance: FISH OIL
  4. ETONOGESTREL AND ETHINYL ESTRADIOL VAGINAL RING [Suspect]
     Active Substance: ETHINYL ESTRADIOL\ETONOGESTREL
     Indication: MENORRHAGIA
     Route: 067
     Dates: start: 20200204, end: 20200428
  5. DAILY MULVIT-VITAMIN [Concomitant]
  6. ETONOGESTREL AND ETHINYL ESTRADIOL VAGINAL RING [Suspect]
     Active Substance: ETHINYL ESTRADIOL\ETONOGESTREL
     Indication: ACNE
     Route: 067
     Dates: start: 20200204, end: 20200428
  7. LOW DOSE NALTREXONE [Concomitant]
     Active Substance: NALTREXONE
  8. SYNTHROID [Concomitant]
     Active Substance: LEVOTHYROXINE SODIUM

REACTIONS (6)
  - Diarrhoea [None]
  - Product substitution issue [None]
  - Acne [None]
  - Nausea [None]
  - Fatigue [None]
  - Chills [None]

NARRATIVE: CASE EVENT DATE: 20200204
